FAERS Safety Report 22197449 (Version 2)
Quarter: 2023Q2

REPORT INFORMATION
  Report Type: Spontaneous
  Country: US (occurrence: US)
  Receive Date: 20230411
  Receipt Date: 20230414
  Transmission Date: 20230722
  Serious: Yes (Life-Threatening, Hospitalization, Other)
  Sender: FDA-Public Use
  Company Number: US-MLMSERVICE-20230328-4192836-1

PATIENT
  Age: 6 Day
  Sex: Male
  Weight: .88 kg

DRUGS (3)
  1. HYDROCORTISONE SODIUM SUCCINATE [Suspect]
     Active Substance: HYDROCORTISONE SODIUM SUCCINATE
     Indication: Steroid therapy
     Dosage: 1 MG/KG, 3X/DAY (EVERY 8 HOURS)
  2. AMPICILLIN [Concomitant]
     Active Substance: AMPICILLIN
     Indication: Antibiotic prophylaxis
     Dosage: 100 MG/KG, 3X/DAY (EVERY 8 HOURS)
  3. AMIKACIN [Concomitant]
     Active Substance: AMIKACIN
     Indication: Antibiotic prophylaxis
     Dosage: 15 MG/KG, ALTERNATE DAY(EVERY 48 HOURS)

REACTIONS (2)
  - Aspergillus infection [Recovered/Resolved]
  - Fungal skin infection [Recovered/Resolved]
